FAERS Safety Report 7388781-9 (Version None)
Quarter: 2011Q1

REPORT INFORMATION
  Report Type: 
  Country: None (occurrence: None)
  Receive Date: 20110329
  Receipt Date: 20110329
  Transmission Date: 20110831
  Serious: Yes (Other)
  Sender: FDA-Public Use
  Company Number: None

PATIENT
  Age: 50 Year
  Sex: Male
  Weight: 90 kg

DRUGS (4)
  1. EUFLEXXA [Suspect]
     Indication: OSTEOARTHRITIS
     Dosage: 2ML 2 ONE WEEK APART 035
     Dates: start: 20110309
  2. EUFLEXXA [Suspect]
     Indication: ARTHRALGIA
     Dosage: 2ML 2 ONE WEEK APART 035
     Dates: start: 20110309
  3. EUFLEXXA [Suspect]
     Indication: OSTEOARTHRITIS
     Dosage: 2ML 2 ONE WEEK APART 035
     Dates: start: 20110316
  4. EUFLEXXA [Suspect]
     Indication: ARTHRALGIA
     Dosage: 2ML 2 ONE WEEK APART 035
     Dates: start: 20110316

REACTIONS (5)
  - INSOMNIA [None]
  - INJECTION SITE ERYTHEMA [None]
  - INJECTION SITE PAIN [None]
  - INJECTION SITE SWELLING [None]
  - GAIT DISTURBANCE [None]
